FAERS Safety Report 6587780-4 (Version None)
Quarter: 2010Q1

REPORT INFORMATION
  Report Type: 
  Country: None (occurrence: None)
  Receive Date: 20100218
  Receipt Date: 20100208
  Transmission Date: 20100710
  Serious: Yes (Other)
  Sender: FDA-Public Use
  Company Number: US-MYLANLABS-2010S1002123

PATIENT
  Age: 52 Year
  Sex: Male
  Weight: 131.54 kg

DRUGS (1)
  1. DIAZEPAM [Suspect]
     Indication: MUSCLE SPASMS
     Dosage: RX: 10MG QD; 10MG QHS
     Route: 048
     Dates: start: 20100107, end: 20100107

REACTIONS (6)
  - CRYING [None]
  - DYSARTHRIA [None]
  - HALLUCINATION [None]
  - NERVOUS SYSTEM DISORDER [None]
  - PANIC ATTACK [None]
  - PERIPHERAL PARALYSIS [None]
